FAERS Safety Report 9361875 (Version 2)
Quarter: 2013Q3

REPORT INFORMATION
  Report Type: Spontaneous
  Country: US (occurrence: US)
  Receive Date: 20130621
  Receipt Date: 20130801
  Transmission Date: 20140515
  Serious: Yes (Life-Threatening)
  Sender: FDA-Public Use
  Company Number: US-GLAXOSMITHKLINE-A1027845A

PATIENT
  Age: 62 Year
  Sex: Female
  Weight: 99.1 kg

DRUGS (18)
  1. LAMICTAL [Suspect]
     Indication: COMPLEX PARTIAL SEIZURES
     Dosage: 300MG SEE DOSAGE TEXT
     Route: 048
     Dates: start: 2010
  2. INSULIN LANTUS [Concomitant]
     Indication: DIABETES MELLITUS
     Route: 058
  3. METFORMIN [Concomitant]
  4. PAXIL [Concomitant]
     Indication: DEPRESSION
     Dosage: 40MG PER DAY
     Route: 048
  5. APAP [Concomitant]
     Dosage: 325MG SEE DOSAGE TEXT
     Route: 048
  6. PROAIR HFA [Concomitant]
     Dosage: 2PUFF AS REQUIRED
     Route: 055
  7. AMLODIPINE [Concomitant]
     Indication: HYPERTENSION
     Dosage: 5MG PER DAY
  8. ASPIRIN [Concomitant]
     Dosage: 81MG PER DAY
     Route: 048
  9. CHLORTHALIDONE [Concomitant]
     Indication: HYPERTENSION
     Dosage: 25MG PER DAY
     Route: 048
  10. FLUTICASONE [Concomitant]
     Indication: RHINITIS ALLERGIC
     Dosage: 2PUFF PER DAY
     Route: 045
  11. HUMALOG INSULIN [Concomitant]
     Indication: DIABETES MELLITUS
     Route: 058
  12. LORATADINE [Concomitant]
     Indication: RHINITIS ALLERGIC
     Dosage: 10MG PER DAY
     Route: 048
  13. LOVASTATIN [Concomitant]
     Indication: HYPERCHOLESTEROLAEMIA
     Dosage: 40MG AT NIGHT
     Route: 048
  14. COZAAR [Concomitant]
     Indication: HYPERTENSION
     Dosage: 100MG PER DAY
     Route: 048
  15. METFORMIN [Concomitant]
     Indication: DIABETES MELLITUS
     Dosage: 500MG TWICE PER DAY
     Route: 048
  16. MULTIVITAMIN [Concomitant]
     Dosage: 1CAP TWELVE TIMES PER DAY
     Route: 048
  17. VALACYCLOVIR [Concomitant]
     Indication: HERPES SIMPLEX
     Dosage: 500MG PER DAY
  18. RANITIDINE [Concomitant]
     Indication: GASTROOESOPHAGEAL REFLUX DISEASE
     Dosage: 150MG PER DAY
     Route: 048

REACTIONS (6)
  - Convulsion [Not Recovered/Not Resolved]
  - Hyposmia [Unknown]
  - Hypogeusia [Unknown]
  - Hypoaesthesia [Unknown]
  - Drug ineffective [Unknown]
  - Treatment noncompliance [Unknown]
